FAERS Safety Report 25951019 (Version 1)
Quarter: 2025Q4

REPORT INFORMATION
  Report Type: Spontaneous
  Country: CN (occurrence: CN)
  Receive Date: 20251023
  Receipt Date: 20251023
  Transmission Date: 20260117
  Serious: Yes (Hospitalization)
  Sender: ACCORD
  Company Number: CN-MLMSERVICE-20251002-PI666989-00249-1

PATIENT
  Age: 65 Year
  Sex: Female
  Weight: 44 kg

DRUGS (6)
  1. CAPECITABINE [Suspect]
     Active Substance: CAPECITABINE
     Indication: Colon cancer
     Dosage: 1.5 G IN THE MORNING AND 1.0 G IN THE EVENING (DAYS 1-14/EVERY 21D)
     Dates: start: 20230802, end: 20231219
  2. OXALIPLATIN [Suspect]
     Active Substance: OXALIPLATIN
     Indication: Colon cancer
     Dosage: 180 MG (DAY 1); EVERY 21 DAYS; 1 CYCLE
     Dates: start: 20230802, end: 20231205
  3. CAPECITABINE [Suspect]
     Active Substance: CAPECITABINE
     Indication: Colorectal cancer stage III
     Dosage: 1.5 G IN THE MORNING AND 1.0 G IN THE EVENING (DAYS 1-14/EVERY 21D)
     Dates: start: 20230802, end: 20231219
  4. OXALIPLATIN [Suspect]
     Active Substance: OXALIPLATIN
     Indication: Metastases to lymph nodes
     Dosage: 180 MG (DAY 1); EVERY 21 DAYS; 1 CYCLE
     Dates: start: 20230802, end: 20231205
  5. CAPECITABINE [Suspect]
     Active Substance: CAPECITABINE
     Indication: Metastases to lymph nodes
     Dosage: 1.5 G IN THE MORNING AND 1.0 G IN THE EVENING (DAYS 1-14/EVERY 21D)
     Dates: start: 20230802, end: 20231219
  6. OXALIPLATIN [Suspect]
     Active Substance: OXALIPLATIN
     Indication: Colorectal cancer stage III
     Dosage: 180 MG (DAY 1); EVERY 21 DAYS; 1 CYCLE
     Dates: start: 20230802, end: 20231205

REACTIONS (2)
  - Interstitial lung disease [Not Recovered/Not Resolved]
  - Condition aggravated [Not Recovered/Not Resolved]

NARRATIVE: CASE EVENT DATE: 20231001
